FAERS Safety Report 12361171 (Version 1)
Quarter: 2016Q2

REPORT INFORMATION
  Report Type: Spontaneous
  Country: US (occurrence: US)
  Receive Date: 20160512
  Receipt Date: 20160512
  Transmission Date: 20160815
  Serious: Yes (Other)
  Sender: FDA-Public Use
  Company Number: US-ACTAVIS-2016-09677

PATIENT
  Age: 22 Year
  Sex: Female

DRUGS (3)
  1. LIDOCAINE HYDROCHLORIDE (WATSON LABORATORIES) [Suspect]
     Active Substance: LIDOCAINE HYDROCHLORIDE
     Dosage: TOTALING 18 ML OF LIDOCAINE, 360 MG OR 5 MG PER KILOGRAM BODY WEIGHT
     Route: 058
  2. LIDOCAINE HYDROCHLORIDE (WATSON LABORATORIES) [Suspect]
     Active Substance: LIDOCAINE HYDROCHLORIDE
     Dosage: 5 ML OF 2% LIDOCAINE (100 MG)
     Route: 050
  3. LIDOCAINE HYDROCHLORIDE (WATSON LABORATORIES) [Suspect]
     Active Substance: LIDOCAINE HYDROCHLORIDE
     Indication: LOCAL ANAESTHESIA
     Dosage: 18 ML OF LIDOCAINE, 360 MG OR 5 MG PER KILOGRAM BODY WEIGHT
     Route: 050

REACTIONS (1)
  - Hoigne^s syndrome [Recovering/Resolving]
